FAERS Safety Report 18809853 (Version 6)
Quarter: 2024Q2

REPORT INFORMATION
  Report Type: Report from Study
  Country: US (occurrence: US)
  Receive Date: 20210129
  Receipt Date: 20240612
  Transmission Date: 20240716
  Serious: Yes (Hospitalization, Other)
  Sender: FDA-Public Use
  Company Number: US-AMNEAL PHARMACEUTICALS-2021-AMRX-00194

PATIENT
  Sex: Female
  Weight: 60 kg

DRUGS (8)
  1. CARBIDOPA\LEVODOPA [Suspect]
     Active Substance: CARBIDOPA\LEVODOPA
     Indication: Parkinson^s disease
     Dosage: 1 CAPSULES, 3X/DAY
     Route: 048
     Dates: start: 201705
  2. CARBIDOPA\LEVODOPA [Suspect]
     Active Substance: CARBIDOPA\LEVODOPA
     Dosage: 1 CAPSULES, 3X/DAY
     Route: 048
     Dates: start: 20221007
  3. CARBIDOPA\LEVODOPA [Suspect]
     Active Substance: CARBIDOPA\LEVODOPA
     Dosage: 1 CAPSULES, 4X/DAY
     Route: 048
     Dates: start: 20221103, end: 2022
  4. CARBIDOPA\LEVODOPA [Suspect]
     Active Substance: CARBIDOPA\LEVODOPA
     Dosage: 195MG TAB 2 CAPS BY MOUTH IN THE MORNING, 1 CAP AT NOON, 1 CAP IN THE EVENING, AND 2 CAPS AT BEDTIME
     Route: 065
  5. AMLODIPINE\METOPROLOL [Concomitant]
     Active Substance: AMLODIPINE\METOPROLOL
     Indication: Hypertension
     Dosage: UNK
     Route: 065
     Dates: start: 202101
  6. ESOMEPRAZOLE [Concomitant]
     Active Substance: ESOMEPRAZOLE
     Indication: Gastrooesophageal reflux disease
     Dosage: UNK
     Route: 065
     Dates: start: 2017
  7. BACLOFEN [Concomitant]
     Active Substance: BACLOFEN
     Indication: Product used for unknown indication
     Dosage: UNK
     Route: 065
  8. COLACE [Concomitant]
     Active Substance: DOCUSATE SODIUM
     Indication: Product used for unknown indication
     Dosage: UNK
     Route: 065

REACTIONS (6)
  - COVID-19 [Unknown]
  - Renal disorder [Unknown]
  - Weight decreased [Unknown]
  - Parkinson^s disease [Unknown]
  - Rash [Unknown]
  - Body height decreased [Unknown]

NARRATIVE: CASE EVENT DATE: 20200101
